FAERS Safety Report 4869965-8 (Version None)
Quarter: 2005Q4

REPORT INFORMATION
  Report Type: 
  Country: None (occurrence: None)
  Receive Date: 20051230
  Receipt Date: 20051005
  Transmission Date: 20060501
  Serious: Yes (Other)
  Sender: FDA-Public Use
  Company Number: US-MERCK-0510USA04485

PATIENT
  Age: 65 Year
  Sex: Male
  Weight: 91 kg

DRUGS (9)
  1. VIOXX [Suspect]
     Indication: BACK INJURY
     Route: 048
     Dates: start: 19991101, end: 20020701
  2. VIOXX [Suspect]
     Route: 048
     Dates: start: 20030501
  3. VIOXX [Suspect]
     Indication: NECK INJURY
     Route: 048
     Dates: start: 19991101, end: 20020701
  4. VIOXX [Suspect]
     Route: 048
     Dates: start: 20030501
  5. ZOCOR [Concomitant]
     Route: 048
  6. VERAPAMIL [Concomitant]
     Route: 065
  7. ASPIRIN [Concomitant]
     Route: 065
  8. BUSPAR [Concomitant]
     Route: 065
  9. DONEPEZIL HYDROCHLORIDE [Concomitant]
     Route: 065

REACTIONS (5)
  - BACK PAIN [None]
  - LACERATION [None]
  - NEPHROLITHIASIS [None]
  - PROSTATIC DISORDER [None]
  - RETINAL VEIN OCCLUSION [None]
